FAERS Safety Report 9227132 (Version 1)
Quarter: 2013Q1

REPORT INFORMATION
  Report Type: Spontaneous
  Country: US (occurrence: None)
  Receive Date: 20120914
  Receipt Date: 20120914
  Transmission Date: 20140127
  Serious: Yes (Hospitalization)
  Sender: FDA-Public Use
  Company Number: JPI-P-P019206

PATIENT
  Age: 25 Year
  Sex: Female

DRUGS (4)
  1. XYREM [Suspect]
     Indication: NARCOLEPSY
     Route: 048
  2. BUSPIRONE [Concomitant]
  3. OXYCODONE [Concomitant]
  4. DIAZEPAM [Concomitant]

REACTIONS (8)
  - Withdrawal syndrome [None]
  - Psychotic disorder [None]
  - Abnormal behaviour [None]
  - Confusional state [None]
  - Delusion [None]
  - Anxiety [None]
  - Tachycardia [None]
  - Paraesthesia [None]
